FAERS Safety Report 5818868-0 (Version None)
Quarter: 2008Q3

REPORT INFORMATION
  Report Type: 
  Country: None (occurrence: None)
  Receive Date: 20080723
  Receipt Date: 20080714
  Transmission Date: 20090109
  Serious: Yes (Other)
  Sender: FDA-Public Use
  Company Number: US-ROCHE-529224

PATIENT
  Sex: Female
  Weight: 56.7 kg

DRUGS (2)
  1. CAPECITABINE [Suspect]
     Indication: BREAST CANCER
     Dosage: STRENGTH: 500 MG
     Route: 048
     Dates: start: 20070803, end: 20071101
  2. CAPECITABINE [Suspect]
     Dosage: DOSE WAS LOWERED.
     Route: 048

REACTIONS (2)
  - DISEASE PROGRESSION [None]
  - PALMAR-PLANTAR ERYTHRODYSAESTHESIA SYNDROME [None]
